FAERS Safety Report 7263547-9 (Version None)
Quarter: 2011Q1

REPORT INFORMATION
  Report Type: 
  Country: None (occurrence: None)
  Receive Date: 20110130
  Receipt Date: 20101027
  Transmission Date: 20110831
  Serious: No
  Sender: FDA-Public Use
  Company Number: US-ABBOTT-10P-163-0681856-00

PATIENT
  Age: 31 Year
  Sex: Female

DRUGS (4)
  1. MAXALT [Concomitant]
     Indication: PRODUCT USED FOR UNKNOWN INDICATION
  2. HUMIRA [Suspect]
     Indication: COLITIS ULCERATIVE
     Dates: start: 20100801
  3. PRILOSEC [Concomitant]
     Indication: PRODUCT USED FOR UNKNOWN INDICATION
  4. CLARITIN [Concomitant]
     Indication: PRODUCT USED FOR UNKNOWN INDICATION

REACTIONS (3)
  - DIARRHOEA [None]
  - COLITIS ULCERATIVE [None]
  - ABDOMINAL PAIN [None]
